FAERS Safety Report 6521506-5 (Version None)
Quarter: 2009Q4

REPORT INFORMATION
  Report Type: 
  Country: None (occurrence: None)
  Receive Date: 20091214
  Receipt Date: 20091214
  Transmission Date: 20100525
  Serious: Yes (Hospitalization)
  Sender: FDA-Public Use
  Company Number: 643922

PATIENT
  Age: 34 Year
  Sex: Female
  Weight: 115.2 kg

DRUGS (28)
  1. PEGASYS [Suspect]
     Indication: HEPATITIS C
     Dosage: 180 UG 1 PER 1 WEEK SUBCUTANEOUS
     Route: 058
     Dates: start: 20090709
  2. RIBAVIRIN [Suspect]
     Indication: HEPATITIS C
     Dosage: 600 MG 2 PER DAY ORAL
     Route: 048
     Dates: start: 20090709
  3. ABILIFY [Concomitant]
  4. ASTHMA (DYPHYLLINE/METHOXYPHENAMINE HYDROCHLORIDE) [Concomitant]
  5. ASPIRIN [Concomitant]
  6. BENZTROPINE MESYLATE [Concomitant]
  7. SERTRALINE [Concomitant]
  8. CYMBALTA [Concomitant]
  9. DICYCLOMINE [Concomitant]
  10. LOVASTATIN [Concomitant]
  11. LUNESTA [Concomitant]
  12. NEURONTIN [Concomitant]
  13. RANITIDINE [Concomitant]
  14. SINGULAIR [Concomitant]
  15. SUBOXONE [Concomitant]
  16. TOPIRAMATE [Concomitant]
  17. ASCORBIC ACID [Concomitant]
  18. VITAMIN D NOS (VITAMIN D NOS) [Concomitant]
  19. XOPENEX [Concomitant]
  20. ZADITOR (KETOTIFEN) [Concomitant]
  21. ATIVAN [Concomitant]
  22. CLOTRIMAZOLE CREAM (CLOTRIMAZOLE) [Concomitant]
  23. DIPHENHYDRAMINE HCL [Concomitant]
  24. DOCUSATE SODIUM (DOCUSATE SODIUM) [Concomitant]
  25. HYDROCORTISONE CREAM (HYDROCORTISONE) [Concomitant]
  26. SUMATRIPTAN SUCCINATE (IMITREX) [Concomitant]
  27. NAPROXEN [Concomitant]
  28. HYDROCHLOROTHIAZIDE [Concomitant]

REACTIONS (15)
  - ASTHENIA [None]
  - BLOOD THYROID STIMULATING HORMONE DECREASED [None]
  - DEHYDRATION [None]
  - DIARRHOEA [None]
  - HAEMOLYTIC ANAEMIA [None]
  - HYPOAESTHESIA [None]
  - HYPOKALAEMIA [None]
  - INFLUENZA [None]
  - NAUSEA [None]
  - OEDEMA PERIPHERAL [None]
  - PAIN IN EXTREMITY [None]
  - PARAESTHESIA [None]
  - RASH [None]
  - TENDERNESS [None]
  - WHITE BLOOD CELL COUNT DECREASED [None]
